FAERS Safety Report 14657034 (Version 1)
Quarter: 2018Q1

REPORT INFORMATION
  Report Type: Spontaneous
  Country: US (occurrence: US)
  Receive Date: 20180319
  Receipt Date: 20180319
  Transmission Date: 20180509
  Serious: No
  Sender: FDA-Public Use
  Company Number: US-TARO-2017TAR00588

PATIENT
  Age: 51 Year
  Sex: Female
  Weight: 61.22 kg

DRUGS (8)
  1. ZYRTEC (GENERIC) [Concomitant]
     Dosage: 10 MG, 1X/DAY
  2. MUCINEX RELIEF VM [Concomitant]
     Dosage: 40 MG, 1X/DAY
  3. SPIRIVA [Concomitant]
     Active Substance: TIOTROPIUM BROMIDE MONOHYDRATE
     Dosage: 18 ?G, 1X/DAY
  4. NYSTATIN ORAL SUSPENSION USP 100,000 UNITS/ML [Suspect]
     Active Substance: NYSTATIN
     Indication: CANDIDA INFECTION
     Dosage: 10 ML, 4X/DAY
     Route: 048
     Dates: start: 201612
  5. ADVAIR HFA [Concomitant]
     Active Substance: FLUTICASONE PROPIONATE\SALMETEROL XINAFOATE
     Dosage: UNK, 2X/DAY
  6. PROAIR HFA [Concomitant]
     Active Substance: ALBUTEROL SULFATE
     Dosage: 90 ?G, 2X/DAY
  7. LIPITOR (GENERIC) [Concomitant]
     Dosage: 20 MG, 1X/DAY IN THE EVENING
  8. PRILOSEC (GENERIC) [Concomitant]
     Dosage: 40 MG, 1X/DAY

REACTIONS (5)
  - Oral discomfort [Recovered/Resolved]
  - Incorrect dose administered [Not Recovered/Not Resolved]
  - Dyspepsia [Recovered/Resolved]
  - Product quality issue [Unknown]
  - Throat irritation [Recovered/Resolved]

NARRATIVE: CASE EVENT DATE: 201612
